FAERS Safety Report 14788634 (Version 1)
Quarter: 2018Q2

REPORT INFORMATION
  Report Type: Spontaneous
  Country: US (occurrence: US)
  Receive Date: 20180423
  Receipt Date: 20180423
  Transmission Date: 20180711
  Serious: Yes (Other)
  Sender: FDA-Public Use
  Company Number: US-BRISTOL-MYERS SQUIBB COMPANY-BMS-2018-035346

PATIENT
  Age: 84 Year
  Sex: Female

DRUGS (1)
  1. SPRYCEL [Suspect]
     Active Substance: DASATINIB
     Indication: LEUKAEMIA
     Dosage: 100 MG, QD
     Route: 048
     Dates: start: 20180323

REACTIONS (7)
  - Dry eye [Unknown]
  - Pruritus [Unknown]
  - Pain [Unknown]
  - Fatigue [Unknown]
  - Musculoskeletal discomfort [Unknown]
  - Ocular hyperaemia [Unknown]
  - Eye pruritus [Unknown]

NARRATIVE: CASE EVENT DATE: 20180401
